FAERS Safety Report 16416794 (Version 2)
Quarter: 2019Q2

REPORT INFORMATION
  Report Type: Report from Study
  Country: IE (occurrence: IE)
  Receive Date: 20190611
  Receipt Date: 20190614
  Transmission Date: 20190711
  Serious: Yes (Hospitalization)
  Sender: FDA-Public Use
  Company Number: IE-PFIZER INC-2019244078

PATIENT
  Weight: 60.4 kg

DRUGS (25)
  1. LACTULOSE. [Concomitant]
     Active Substance: LACTULOSE
     Dosage: 15 ML, 2X/DAY
     Dates: start: 20181123, end: 20181123
  2. CYCLIZINE [Concomitant]
     Active Substance: CYCLIZINE
     Indication: VOMITING
  3. MITOXANTRONE HCL [Suspect]
     Active Substance: MITOXANTRONE HYDROCHLORIDE
     Dosage: 2.0 MG/M2, 3X/DAY
     Route: 042
     Dates: start: 20181121, end: 20181124
  4. MOVICOL [Concomitant]
     Active Substance: POLYETHYLENE GLYCOL 3350\POTASSIUM CHLORIDE\SODIUM BICARBONATE\SODIUM CHLORIDE
     Indication: CONSTIPATION
     Dosage: 1 SACHET TWICE A DAY
     Dates: start: 20181121, end: 20181126
  5. LORAZEPAM. [Concomitant]
     Active Substance: LORAZEPAM
     Indication: ANXIETY
     Dosage: 2 MG, DAILY
     Dates: start: 20181123, end: 20181126
  6. SEVREDOL [Concomitant]
     Active Substance: MORPHINE
     Indication: ANALGESIC THERAPY
     Dosage: 10 MG, 4HOURLY
     Dates: start: 20181120, end: 20181121
  7. GENTAMICIN. [Concomitant]
     Active Substance: GENTAMICIN
     Dosage: 422 MG, DAILY
     Dates: start: 20181122, end: 20181123
  8. COTRIMOXAZOLE [Concomitant]
     Active Substance: SULFAMETHOXAZOLE\TRIMETHOPRIM
     Indication: INFECTION
     Dosage: 960.0 MG, 2X/DAY
     Dates: start: 20181124
  9. RASBURICASE [Concomitant]
     Active Substance: RASBURICASE
     Indication: HYPERLIPIDAEMIA
     Dosage: 12 MG, DAILY
     Dates: start: 20181122
  10. CHLORPHENAMINE [Concomitant]
     Active Substance: CHLORPHENIRAMINE MALEATE
     Indication: ANTIALLERGIC THERAPY
     Dosage: 10 MG, AS NEEDED
     Dates: start: 20181123, end: 20181123
  11. VORICONAZOLE. [Concomitant]
     Active Substance: VORICONAZOLE
     Indication: ANTIFUNGAL TREATMENT
     Dosage: 200 MG, ALTERNATE DAYS
     Dates: start: 20181129
  12. GEMTUZUMAB OZOGAMICIN [Suspect]
     Active Substance: GEMTUZUMAB OZOGAMICIN
     Dosage: 5.0 MG, UNK
     Route: 042
     Dates: start: 20181123, end: 20181123
  13. TAZOCIN [Concomitant]
     Active Substance: PIPERACILLIN SODIUM\TAZOBACTAM SODIUM
     Indication: INFECTION
     Dosage: 4.5 MG, 4X/DAY
     Dates: start: 20181118, end: 20181126
  14. AMBISOME [Concomitant]
     Active Substance: AMPHOTERICIN B
     Indication: PROPHYLAXIS
     Dosage: 60.0 MG, 3X/DAY
     Dates: start: 20181122, end: 20181126
  15. ONDANSETRON [Concomitant]
     Active Substance: ONDANSETRON
     Indication: NAUSEA
     Dosage: 8.0 MG, 3X/DAY
     Dates: start: 20181122
  16. AMBISOME [Concomitant]
     Active Substance: AMPHOTERICIN B
     Dosage: 60 MG, DAILY
     Dates: start: 20181127, end: 20181127
  17. OMEPRAZOLE. [Concomitant]
     Active Substance: OMEPRAZOLE
     Indication: REFLUX GASTRITIS
     Dosage: 20 MG, DAILY
     Dates: start: 20181119, end: 20181126
  18. ONDANSETRON [Concomitant]
     Active Substance: ONDANSETRON
     Indication: VOMITING
  19. PARACETAMOL [Concomitant]
     Active Substance: ACETAMINOPHEN
     Indication: ANALGESIC THERAPY
     Dosage: 1.0 G, AS NEEDED
     Dates: start: 20181111
  20. LACTULOSE. [Concomitant]
     Active Substance: LACTULOSE
     Indication: CONSTIPATION
     Dosage: 10 ML, 2X/DAY
     Dates: start: 20181121, end: 20181121
  21. CYCLIZINE [Concomitant]
     Active Substance: CYCLIZINE
     Indication: NAUSEA
     Dosage: 50 MG, 3X/DAY
     Dates: start: 20181122, end: 20181123
  22. GENTAMICIN. [Concomitant]
     Active Substance: GENTAMICIN
     Indication: INFECTION
     Dosage: 422 MG, DAILY
     Dates: start: 20181119, end: 20181119
  23. LEVOMEPROMAZINE [Concomitant]
     Active Substance: LEVOMEPROMAZINE
     Indication: NAUSEA
     Dosage: 1.5 MG, 2X/DAY
     Dates: start: 20181123, end: 20181124
  24. LEVOMEPROMAZINE [Concomitant]
     Active Substance: LEVOMEPROMAZINE
     Indication: VOMITING
     Dosage: 3 MG, 2X/DAY
     Dates: start: 20181124
  25. ORAMORPH [Concomitant]
     Active Substance: MORPHINE SULFATE
     Indication: ANALGESIC THERAPY
     Dosage: 10 MG, 3X/DAY
     Dates: start: 20181120, end: 20181122

REACTIONS (1)
  - Febrile neutropenia [Recovered/Resolved]

NARRATIVE: CASE EVENT DATE: 20181130
